FAERS Safety Report 11537036 (Version 3)
Quarter: 2018Q4

REPORT INFORMATION
  Report Type: Report from Study
  Country: US (occurrence: US)
  Receive Date: 20150922
  Receipt Date: 20181217
  Transmission Date: 20190204
  Serious: Yes (Hospitalization, Other)
  Sender: FDA-Public Use
  Company Number: US-SA-2015SA141285

PATIENT
  Age: 70 Year
  Sex: Female

DRUGS (2)
  1. HUMALOG [Concomitant]
     Active Substance: INSULIN LISPRO
     Dosage: UNK
     Dates: start: 20180915, end: 20181015
  2. INSULIN GLARGINE [Suspect]
     Active Substance: INSULIN GLARGINE
     Indication: DIABETES MELLITUS
     Dosage: 50 U, QD
     Route: 058
     Dates: start: 20130615

REACTIONS (12)
  - Blood glucose increased [Unknown]
  - Stress [Unknown]
  - Glycosylated haemoglobin increased [Unknown]
  - Macular degeneration [Unknown]
  - Bronchitis [Unknown]
  - Blood glucose increased [Unknown]
  - Malaise [Unknown]
  - Pain [Unknown]
  - Influenza [Unknown]
  - Nausea [Unknown]
  - Cardiac disorder [Unknown]
  - Blood glucose abnormal [Recovered/Resolved]

NARRATIVE: CASE EVENT DATE: 201809
